FAERS Safety Report 14985965 (Version 3)
Quarter: 2022Q2

REPORT INFORMATION
  Report Type: Report from Study
  Country: KR (occurrence: KR)
  Receive Date: 20180607
  Receipt Date: 20220610
  Transmission Date: 20220721
  Serious: Yes (Hospitalization)
  Sender: FDA-Public Use
  Company Number: KR-KOWA-18JP001279

PATIENT
  Age: 51 Year
  Sex: Male
  Weight: 82 kg

DRUGS (9)
  1. PITAVASTATIN [Suspect]
     Active Substance: PITAVASTATIN
     Indication: Dyslipidaemia
     Dosage: 4 MG, QD
     Route: 048
     Dates: start: 20171201
  2. PITAVASTATIN [Suspect]
     Active Substance: PITAVASTATIN
     Dosage: UNK, UNK
     Route: 048
     Dates: start: 20171129, end: 20171130
  3. VALSARTAN [Suspect]
     Active Substance: VALSARTAN
     Indication: Dyslipidaemia
     Dosage: 80 MG, QD
     Route: 048
     Dates: start: 20171129
  4. ASPIRIN [Concomitant]
     Active Substance: ASPIRIN
     Indication: Acute myocardial infarction
     Dosage: 100 MG, QD
     Route: 048
     Dates: start: 20171129
  5. DEXILANT [Concomitant]
     Active Substance: DEXLANSOPRAZOLE
     Indication: Acute myocardial infarction
     Dosage: 30 MG, QD
     Route: 048
     Dates: start: 20171128
  6. BRILINTA [Concomitant]
     Active Substance: TICAGRELOR
     Indication: Acute myocardial infarction
     Dosage: 180 MG, UNK
     Route: 048
     Dates: start: 20171128
  7. ATACAND [Concomitant]
     Active Substance: CANDESARTAN CILEXETIL
     Indication: Acute myocardial infarction
     Dosage: 4 MG, QD
     Route: 048
     Dates: start: 20171129
  8. NITROGLYCERIN [Concomitant]
     Active Substance: NITROGLYCERIN
     Indication: Acute myocardial infarction
     Dosage: 0.6 MG, PRN
     Route: 048
     Dates: start: 20171128
  9. BISOPROLOL FUMARATE [Concomitant]
     Active Substance: BISOPROLOL FUMARATE
     Indication: Acute myocardial infarction
     Dosage: 1.25 MG, QD
     Route: 048
     Dates: start: 20171128

REACTIONS (1)
  - Acute myocardial infarction [Recovered/Resolved]

NARRATIVE: CASE EVENT DATE: 20180526
